FAERS Safety Report 14633505 (Version 1)
Quarter: 2018Q1

REPORT INFORMATION
  Report Type: Report from Study
  Country: None (occurrence: AT)
  Receive Date: 20180314
  Receipt Date: 20180314
  Transmission Date: 20180509
  Serious: Yes (Hospitalization)
  Sender: FDA-Public Use
  Company Number: AT-ABBVIE-18K-009-2284170-00

PATIENT
  Sex: Female

DRUGS (2)
  1. DUODOPA [Suspect]
     Active Substance: CARBIDOPA\LEVODOPA
     Dosage: 16H THERAPY:??MD: 3.5ML, CR DAYTIME/NOCTURNAL: 2.3ML/H, ED: 1.2ML
     Route: 050
     Dates: start: 201802
  2. DUODOPA [Suspect]
     Active Substance: CARBIDOPA\LEVODOPA
     Indication: PARKINSON^S DISEASE
     Dosage: MD: 4.1ML, CR DAYTIME/NOCTURNAL: 3.1ML/H, ED: 1.2MK
     Route: 050
     Dates: start: 20060516, end: 201802

REACTIONS (2)
  - General physical health deterioration [Recovering/Resolving]
  - Hyperkinesia [Recovering/Resolving]
